FAERS Safety Report 12754193 (Version 4)
Quarter: 2019Q2

REPORT INFORMATION
  Report Type: Report from Study
  Country: DE (occurrence: DE)
  Receive Date: 20160916
  Receipt Date: 20190520
  Transmission Date: 20190711
  Serious: Yes (Death, Other)
  Sender: FDA-Public Use
  Company Number: DE-BRISTOL-MYERS SQUIBB COMPANY-BMS-2016-074812

PATIENT
  Sex: Male

DRUGS (2)
  1. PREDNISOLONE                        /00016201/ [Concomitant]
     Indication: PRODUCT USED FOR UNKNOWN INDICATION
     Dosage: 5 MG, UNK
     Route: 065
  2. ABATACEPT [Suspect]
     Active Substance: ABATACEPT
     Indication: RHEUMATOID ARTHRITIS
     Dosage: 125 MG, QWK
     Route: 058
     Dates: start: 201506

REACTIONS (3)
  - Septic shock [Fatal]
  - Multiple organ dysfunction syndrome [Fatal]
  - Pneumonia [Fatal]

NARRATIVE: CASE EVENT DATE: 20160623
